FAERS Safety Report 24316147 (Version 2)
Quarter: 2025Q1

REPORT INFORMATION
  Report Type: Report from Study
  Country: US (occurrence: US)
  Receive Date: 20240913
  Receipt Date: 20250225
  Transmission Date: 20250409
  Serious: Yes (Other)
  Sender: NOVARTIS
  Company Number: US-002147023-NVSC2024US183182

PATIENT
  Age: 78 Year
  Sex: Male

DRUGS (1)
  1. LEQVIO [Suspect]
     Active Substance: INCLISIRAN SODIUM
     Indication: Product used for unknown indication
     Route: 058
     Dates: start: 20240801

REACTIONS (7)
  - COVID-19 pneumonia [Unknown]
  - Fatigue [Unknown]
  - Asthenia [Unknown]
  - Arthralgia [Unknown]
  - Myalgia [Unknown]
  - Pain in extremity [Unknown]
  - Neuralgia [Unknown]

NARRATIVE: CASE EVENT DATE: 20240801
